FAERS Safety Report 11855794 (Version 2)
Quarter: 2016Q1

REPORT INFORMATION
  Report Type: Spontaneous
  Country: US (occurrence: US)
  Receive Date: 20151221
  Receipt Date: 20160215
  Transmission Date: 20160526
  Serious: Yes (Hospitalization, Other)
  Sender: FDA-Public Use
  Company Number: US-GLAXOSMITHKLINE-US2015177186

PATIENT
  Age: 53 Year
  Sex: Male

DRUGS (1)
  1. VENTOLIN HFA [Suspect]
     Active Substance: ALBUTEROL SULFATE
     Indication: ASTHMA
     Dosage: 1 PUFF(S), PRN
     Route: 055

REACTIONS (3)
  - Neck surgery [Recovering/Resolving]
  - Spinal operation [Recovering/Resolving]
  - Vocal cord paralysis [Recovering/Resolving]

NARRATIVE: CASE EVENT DATE: 20150603
